FAERS Safety Report 7808895-6 (Version None)
Quarter: 2011Q4

REPORT INFORMATION
  Report Type: 
  Country: None (occurrence: None)
  Receive Date: 20111012
  Receipt Date: 20111011
  Transmission Date: 20120403
  Serious: Yes (Death)
  Sender: FDA-Public Use
  Company Number: PHHY2011NZ81482

PATIENT
  Sex: Female

DRUGS (6)
  1. CLOZAPINE [Suspect]
     Indication: SCHIZOPHRENIA
     Dosage: 275 MG, NOCTE
     Route: 048
     Dates: start: 20080227
  2. VALPROATE SODIUM [Concomitant]
     Indication: AFFECTIVE DISORDER
     Dosage: 1500 MG, BD
     Route: 048
  3. ZOPICLONE [Concomitant]
     Indication: SLEEP DISORDER
     Dosage: 7.5 MG, NOCTE PRN
     Route: 048
  4. MULTIVITAMIN [Concomitant]
     Indication: SUPPLEMENTATION THERAPY
     Dosage: 2 DF, DAILY
     Route: 048
  5. LEVOTHYROXINE SODIUM [Concomitant]
     Indication: HYPOTHYROIDISM
     Dosage: 100 MG, DAILY
     Route: 048
  6. QUETIAPINE [Concomitant]
     Indication: PSYCHOTIC DISORDER
     Dosage: 300 MG, 100 MG MANE AND 200 MG NOCTE

REACTIONS (1)
  - PULMONARY OEDEMA [None]
